FAERS Safety Report 16278269 (Version 1)
Quarter: 2019Q2

REPORT INFORMATION
  Report Type: Spontaneous
  Country: DE (occurrence: DE)
  Receive Date: 20190506
  Receipt Date: 20190506
  Transmission Date: 20190711
  Serious: Yes (Other)
  Sender: FDA-Public Use
  Company Number: PHHY2019DE102177

PATIENT
  Age: 60 Year
  Sex: Female

DRUGS (1)
  1. ESTRAMON CONTI [Suspect]
     Active Substance: ESTRADIOL\NORETHINDRONE ACETATE
     Indication: PRODUCT USED FOR UNKNOWN INDICATION
     Dosage: UNK UNK, QW
     Route: 062

REACTIONS (6)
  - Application site erythema [Unknown]
  - Product prescribing error [Unknown]
  - Haemorrhage [Unknown]
  - Product adhesion issue [Unknown]
  - Application site pruritus [Unknown]
  - Drug ineffective [Unknown]
